FAERS Safety Report 6822354-9 (Version None)
Quarter: 2010Q3

REPORT INFORMATION
  Report Type: 
  Country: None (occurrence: None)
  Receive Date: 20100708
  Receipt Date: 20100624
  Transmission Date: 20110219
  Serious: Yes (Other)
  Sender: FDA-Public Use
  Company Number: PHHY2010CA38467

PATIENT
  Sex: Male

DRUGS (5)
  1. EXJADE [Suspect]
     Indication: THALASSAEMIA
     Dosage: 2000 MG, QD
     Route: 048
     Dates: start: 20070101
  2. EXJADE [Suspect]
     Dosage: 2000 MG, QD
     Route: 048
  3. DILANTIN [Concomitant]
     Dosage: 400 MG QHS
  4. CORTEF                                  /CAN/ [Concomitant]
     Dosage: 10 MG, QD
     Route: 048
  5. SYNTHROID [Concomitant]
     Dosage: 0.112 MG, QD
     Route: 048

REACTIONS (3)
  - COUGH [None]
  - DIARRHOEA [None]
  - NASOPHARYNGITIS [None]
